FAERS Safety Report 24768218 (Version 1)
Quarter: 2024Q4

REPORT INFORMATION
  Report Type: Spontaneous
  Country: US (occurrence: US)
  Receive Date: 20241223
  Receipt Date: 20241223
  Transmission Date: 20250114
  Serious: Yes (Other)
  Sender: JOHNSON AND JOHNSON
  Company Number: US-JNJFOC-20241249902

PATIENT
  Sex: Female

DRUGS (3)
  1. SPRAVATO [Suspect]
     Active Substance: ESKETAMINE
     Indication: Product used for unknown indication
     Dosage: THE PATIENT MOVED FROM ONCE WEEKLY TO TWICE WEEKLY SPRAVATO TREATMENTS.
     Route: 045
  2. SPRAVATO [Suspect]
     Active Substance: ESKETAMINE
     Route: 045
  3. EFFEXOR [Concomitant]
     Active Substance: VENLAFAXINE HYDROCHLORIDE

REACTIONS (6)
  - Hallucination, visual [Recovered/Resolved]
  - Self-destructive behaviour [Recovered/Resolved]
  - Depression [Unknown]
  - Screaming [Recovered/Resolved]
  - Crying [Recovered/Resolved]
  - Dissociation [Recovered/Resolved]

NARRATIVE: CASE EVENT DATE: 20240101
